FAERS Safety Report 11410583 (Version 3)
Quarter: 2015Q4

REPORT INFORMATION
  Report Type: Spontaneous
  Country: US (occurrence: US)
  Receive Date: 20150824
  Receipt Date: 20151022
  Transmission Date: 20160304
  Serious: Yes (Hospitalization)
  Sender: FDA-Public Use
  Company Number: US-PFIZER INC-2015277798

PATIENT
  Age: 71 Year
  Sex: Female
  Weight: 95 kg

DRUGS (18)
  1. ELIQUIS [Concomitant]
     Active Substance: APIXABAN
     Dosage: 5 MG, UNK
  2. GLIMEPIRIDE. [Concomitant]
     Active Substance: GLIMEPIRIDE
     Indication: BLOOD GLUCOSE ABNORMAL
     Dosage: 2 MG, UNK
  3. VITAMIN B2 [Concomitant]
     Active Substance: RIBOFLAVIN
     Dosage: UNK
  4. AMLODIPINE [Concomitant]
     Active Substance: AMLODIPINE BESYLATE
     Indication: HYPERTENSION
     Dosage: UNK
  5. IPRATROPIUM [Concomitant]
     Active Substance: IPRATROPIUM
     Dosage: UNK (AT 12 O^CLOCK)
  6. PREDNISONE. [Concomitant]
     Active Substance: PREDNISONE
     Dosage: 10 MG, EVERY DAY
  7. LEXAPRO [Concomitant]
     Active Substance: ESCITALOPRAM OXALATE
     Dosage: 20 MG, UNK
  8. SPIRIVA [Concomitant]
     Active Substance: TIOTROPIUM BROMIDE MONOHYDRATE
     Dosage: UNK
  9. LASIX [Concomitant]
     Active Substance: FUROSEMIDE
     Indication: PERIPHERAL SWELLING
     Dosage: 40 MG, UNK
  10. LEVOTHYROXINE. [Concomitant]
     Active Substance: LEVOTHYROXINE
     Indication: THYROID DISORDER
     Dosage: 50 MG, UNK
  11. TIKOSYN [Suspect]
     Active Substance: DOFETILIDE
     Dosage: 125 ?G, 2X/DAY
     Route: 048
     Dates: start: 201410
  12. POTASSIUM [Concomitant]
     Active Substance: POTASSIUM
     Dosage: 20 MG, UNK
  13. BROVANA [Concomitant]
     Active Substance: ARFORMOTEROL TARTRATE
     Dosage: UNK, 2X/DAY
  14. HYDROCHLOROTHIAZIDE. [Concomitant]
     Active Substance: HYDROCHLOROTHIAZIDE
     Indication: DIURETIC THERAPY
     Dosage: 25 MG, UNK
  15. LISINOPRIL. [Concomitant]
     Active Substance: LISINOPRIL
     Dosage: 10 MG, UNK
  16. BUDESONIDE. [Concomitant]
     Active Substance: BUDESONIDE
     Dosage: UNK, 2X/DAY
  17. ALBUTEROL. [Concomitant]
     Active Substance: ALBUTEROL
     Dosage: UNK
  18. XANAX [Concomitant]
     Active Substance: ALPRAZOLAM
     Dosage: 1 MG, UNK

REACTIONS (2)
  - Chronic obstructive pulmonary disease [Unknown]
  - Product quality issue [Unknown]

NARRATIVE: CASE EVENT DATE: 20150806
